FAERS Safety Report 12874007 (Version 2)
Quarter: 2016Q4

REPORT INFORMATION
  Report Type: Report from Study
  Country: US (occurrence: US)
  Receive Date: 20161021
  Receipt Date: 20161213
  Transmission Date: 20170207
  Serious: Yes (Other)
  Sender: FDA-Public Use
  Company Number: US-BAYER-2016-193539

PATIENT
  Age: 73 Year
  Sex: Female

DRUGS (3)
  1. STIVARGA [Suspect]
     Active Substance: REGORAFENIB
     Indication: COLON CANCER
     Dosage: 3 TABLETS DAILY (40 MG TABLETS)
     Route: 048
     Dates: start: 20160913, end: 2016
  2. STIVARGA [Suspect]
     Active Substance: REGORAFENIB
     Indication: COLON CANCER
     Dosage: 80 MG DAILY DOSE
     Route: 048
     Dates: start: 2016, end: 20161031
  3. STIVARGA [Suspect]
     Active Substance: REGORAFENIB
     Indication: COLON CANCER
     Dosage: 80 MG, QD (21 DAYS ON AND 7 DAYS OFF)
     Route: 048
     Dates: start: 2016, end: 2016

REACTIONS (4)
  - Adverse drug reaction [None]
  - Dry mouth [Unknown]
  - Off label use [None]
  - Adverse drug reaction [Unknown]
